FAERS Safety Report 16570540 (Version 1)
Quarter: 2019Q3

REPORT INFORMATION
  Report Type: Report from Study
  Country: CN (occurrence: CN)
  Receive Date: 20190715
  Receipt Date: 20190715
  Transmission Date: 20191004
  Serious: Yes (Other)
  Sender: FDA-Public Use
  Company Number: CN-ROCHE-2349554

PATIENT

DRUGS (3)
  1. KANG AI ZHU SHE YE [Suspect]
     Active Substance: HERBALS
     Indication: COLORECTAL CANCER
     Route: 042
  2. OXALIPLATIN. [Suspect]
     Active Substance: OXALIPLATIN
     Indication: COLORECTAL CANCER
     Dosage: FOR 2 HOURS ON DAY 1
     Route: 042
  3. CAPECITABINE. [Suspect]
     Active Substance: CAPECITABINE
     Indication: COLORECTAL CANCER
     Dosage: DAYS 1~14, 21 DAY PER CYCLE
     Route: 048

REACTIONS (1)
  - Anaphylactic shock [Unknown]
